FAERS Safety Report 14472160 (Version 1)
Quarter: 2018Q1

REPORT INFORMATION
  Report Type: Spontaneous
  Country: US (occurrence: US)
  Receive Date: 20180131
  Receipt Date: 20180131
  Transmission Date: 20180509
  Serious: Yes (Life-Threatening, Hospitalization, Other)
  Sender: FDA-Public Use
  Company Number: US-MYLANLABS-2018M1006305

PATIENT
  Age: 48 Year
  Sex: Female

DRUGS (1)
  1. MIDODRINE [Suspect]
     Active Substance: MIDODRINE
     Indication: PRODUCT USED FOR UNKNOWN INDICATION
     Dosage: INTENTIONAL INGESTION 30-40 TABLETS OF 10MG
     Route: 048

REACTIONS (9)
  - Metabolic acidosis [Unknown]
  - Hypertension [Recovered/Resolved]
  - Electrocardiogram ST segment depression [Unknown]
  - Posterior reversible encephalopathy syndrome [Recovered/Resolved]
  - Intentional overdose [Recovering/Resolving]
  - Troponin increased [Unknown]
  - Headache [Unknown]
  - Toxicity to various agents [Recovering/Resolving]
  - Subarachnoid haemorrhage [Unknown]
